FAERS Safety Report 12480386 (Version 1)
Quarter: 2016Q2

REPORT INFORMATION
  Report Type: Other
  Country: IT (occurrence: IT)
  Receive Date: 20160620
  Receipt Date: 20160620
  Transmission Date: 20160815
  Serious: Yes (Other)
  Sender: FDA-Public Use
  Company Number: IT-MYLANLABS-2016M1024549

PATIENT

DRUGS (2)
  1. TAMSULOSIN MYLAN GENERICS [Suspect]
     Active Substance: TAMSULOSIN
     Indication: BENIGN PROSTATIC HYPERPLASIA
     Dosage: UNK
     Route: 048
     Dates: start: 20160331, end: 20160502
  2. TAMSULOSIN MYLAN GENERICS [Suspect]
     Active Substance: TAMSULOSIN
     Dosage: 1 DF, PM
     Dates: start: 20160505

REACTIONS (3)
  - Vomiting [Recovered/Resolved]
  - Orthostatic hypertension [Recovered/Resolved]
  - Orthostatic hypotension [Unknown]

NARRATIVE: CASE EVENT DATE: 20160502
